FAERS Safety Report 8781343 (Version 1)
Quarter: 2012Q4

REPORT INFORMATION
  Report Type: 
  Country: US (occurrence: US)
  Receive Date: 20120913
  Receipt Date: 20120913
  Transmission Date: 20130627
  Serious: No
  Sender: FDA-Public Use
  Company Number: US-VERTEX PHARMACEUTICAL INC.-AE-2012-006866

PATIENT

DRUGS (6)
  1. INCIVEK [Suspect]
     Indication: HEPATITIS C
     Route: 048
     Dates: start: 20120509
  2. PEGASYS [Concomitant]
     Indication: HEPATITIS C
     Route: 058
     Dates: start: 20120509
  3. RIBAVIRIN [Concomitant]
     Indication: HEPATITIS C
     Route: 048
     Dates: start: 20120509
  4. ENALAPRIL [Concomitant]
     Route: 048
  5. INSULIN [Concomitant]
     Indication: DIABETES MELLITUS
     Route: 058
  6. PROPRANOLOL [Concomitant]
     Route: 048

REACTIONS (1)
  - Haematuria [Recovered/Resolved]
